FAERS Safety Report 24157874 (Version 2)
Quarter: 2024Q3

REPORT INFORMATION
  Report Type: Spontaneous
  Country: JP (occurrence: JP)
  Receive Date: 20240731
  Receipt Date: 20240816
  Transmission Date: 20241016
  Serious: No
  Sender: AMGEN
  Company Number: JP-DSJP-DSJ-2024-137043

PATIENT

DRUGS (1)
  1. DENOSUMAB [Suspect]
     Active Substance: DENOSUMAB
     Indication: Osteoporosis
     Dosage: 60 MILLIGRAM, Q6MO
     Route: 058

REACTIONS (1)
  - Glomerular filtration rate decreased [Not Recovered/Not Resolved]
